FAERS Safety Report 14619617 (Version 1)
Quarter: 2018Q1

REPORT INFORMATION
  Report Type: Spontaneous
  Country: US (occurrence: US)
  Receive Date: 20180309
  Receipt Date: 20180309
  Transmission Date: 20180509
  Serious: Yes (Other)
  Sender: FDA-Public Use
  Company Number: None

PATIENT
  Age: 72 Year
  Sex: Male
  Weight: 117 kg

DRUGS (1)
  1. ERBITUX [Suspect]
     Active Substance: CETUXIMAB
     Indication: HEAD AND NECK CANCER
     Route: 042
     Dates: start: 20180309

REACTIONS (5)
  - Pruritus [None]
  - Blood pressure increased [None]
  - Flushing [None]
  - Dyspnoea [None]
  - Body temperature increased [None]

NARRATIVE: CASE EVENT DATE: 20180309
